FAERS Safety Report 22099587 (Version 1)
Quarter: 2023Q1

REPORT INFORMATION
  Report Type: Spontaneous
  Country: US (occurrence: US)
  Receive Date: 20230315
  Receipt Date: 20230315
  Transmission Date: 20230418
  Serious: No
  Sender: FDA-Public Use
  Company Number: US-JNJFOC-20230316640

PATIENT
  Age: 68 Year
  Sex: Female
  Weight: 50.8 kg

DRUGS (2)
  1. IMODIUM [Suspect]
     Active Substance: LOPERAMIDE HYDROCHLORIDE
     Indication: Diarrhoea
     Dosage: DOSE: 2MG OF EACH TABLET SO I HAVE TAKEN 3 MG SO FAR
     Route: 048
     Dates: start: 202302
  2. PAXLOVID [Concomitant]
     Active Substance: NIRMATRELVIR\RITONAVIR
     Indication: COVID-19
     Dosage: DOSE: TOOK THREE TABLETS LAST NIGHT FROM THE BLUE SIDE AND I TOOK THREE TABLETS THIS MORNING FROM YE
     Route: 065

REACTIONS (1)
  - Incorrect dose administered [Unknown]

NARRATIVE: CASE EVENT DATE: 20230201
